FAERS Safety Report 6436432 (Version 2)
Quarter: 2018Q4

REPORT INFORMATION
  Report Type: Spontaneous
  Country: GB (occurrence: GB)
  Receive Date: 20071005
  Receipt Date: 20181217
  Transmission Date: 20190205
  Serious: Yes (Disabling, Other)
  Sender: FDA-Public Use
  Company Number: GB-BAYER-200710741BNE

PATIENT
  Age: 30 Year
  Sex: Female
  Weight: 80 kg

DRUGS (9)
  1. CIPROFLOXACIN. [Suspect]
     Active Substance: CIPROFLOXACIN
     Indication: TYPHOID FEVER
  2. CIPROFLOXACIN. [Suspect]
     Active Substance: CIPROFLOXACIN
     Indication: PYREXIA
  3. TINIDAZOLE. [Concomitant]
     Active Substance: TINIDAZOLE
     Indication: GIARDIASIS
  4. CIPROFLOXACIN. [Suspect]
     Active Substance: CIPROFLOXACIN
     Indication: ABDOMINAL DISCOMFORT
  5. LOPERAMIDE [Concomitant]
     Active Substance: LOPERAMIDE
     Indication: DIARRHOEA
     Dosage: 10 MG (DAILY DOSE), ONCE, ORAL
     Route: 048
     Dates: start: 20070626
  6. DOXYCYCLINE. [Concomitant]
     Active Substance: DOXYCYCLINE
     Indication: MALARIA PROPHYLAXIS
     Dosage: 200 MG (DAILY DOSE), QD, ORAL
     Route: 048
     Dates: start: 200701
  7. CIPROFLOXACIN. [Suspect]
     Active Substance: CIPROFLOXACIN
     Indication: DIARRHOEA
     Dosage: 1000 MG, QD
     Route: 048
     Dates: start: 20070626, end: 20070704
  8. TINIDAZOLE. [Concomitant]
     Active Substance: TINIDAZOLE
     Indication: DIARRHOEA
     Dosage: 2 G (DAILY DOSE), , ORAL
     Route: 048
     Dates: start: 20070626
  9. PROGESTERONE. [Concomitant]
     Active Substance: PROGESTERONE
     Indication: CONTRACEPTION
     Dosage: UNK
     Dates: start: 200503

REACTIONS (11)
  - Insomnia [Recovered/Resolved]
  - Paraesthesia [Recovered/Resolved]
  - Neuropathy peripheral [Recovered/Resolved]
  - Haematochezia [Recovered/Resolved]
  - Diarrhoea [Recovered/Resolved]
  - Hypoaesthesia [Recovered/Resolved]
  - Paranoia [Recovered/Resolved]
  - Thinking abnormal [Recovered/Resolved]
  - Caffeine allergy [Unknown]
  - Pyrexia [Unknown]
  - Anxiety [Recovered/Resolved]

NARRATIVE: CASE EVENT DATE: 20070628
